FAERS Safety Report 13713667 (Version 6)
Quarter: 2018Q1

REPORT INFORMATION
  Report Type: Report from Study
  Country: US (occurrence: US)
  Receive Date: 20170704
  Receipt Date: 20180228
  Transmission Date: 20180508
  Serious: No
  Sender: FDA-Public Use
  Company Number: US-AMGEN-USASL2017098441

PATIENT
  Age: 52 Year
  Sex: Female

DRUGS (1)
  1. ENBREL [Suspect]
     Active Substance: ETANERCEPT
     Indication: PSORIASIS
     Dosage: UNK
     Route: 065
     Dates: start: 2007

REACTIONS (9)
  - Alopecia [Unknown]
  - Crying [Unknown]
  - Pain of skin [Unknown]
  - Psoriasis [Unknown]
  - Feeling abnormal [Unknown]
  - Formication [Unknown]
  - Tearfulness [Unknown]
  - Drug dose omission [Unknown]
  - Stress [Unknown]

NARRATIVE: CASE EVENT DATE: 2017
